FAERS Safety Report 8629913 (Version 3)
Quarter: 2013Q1

REPORT INFORMATION
  Report Type: Spontaneous
  Country: US (occurrence: US)
  Receive Date: 20120622
  Receipt Date: 20130102
  Transmission Date: 20140127
  Serious: Yes (Other)
  Sender: FDA-Public Use
  Company Number: US-BRISTOL-MYERS SQUIBB COMPANY-16687592

PATIENT
  Age: 70 Year
  Sex: Male

DRUGS (2)
  1. ORENCIA [Suspect]
     Indication: RHEUMATOID ARTHRITIS
     Dosage: INTRP ON FEB12 + RESTR ON 1JUN12,ORENCIA FOR 3-4 YEARS?LAST INF ON 12NOV12
     Route: 042
  2. PREDNISONE [Concomitant]

REACTIONS (5)
  - Joint surgery [Unknown]
  - Dyspnoea [Unknown]
  - Cough [Unknown]
  - Influenza like illness [Unknown]
  - Chronic obstructive pulmonary disease [Unknown]
